FAERS Safety Report 4708949-7 (Version None)
Quarter: 2005Q3

REPORT INFORMATION
  Report Type: 
  Country: None (occurrence: None)
  Receive Date: 20050705
  Receipt Date: 20050622
  Transmission Date: 20060218
  Serious: Yes (Other)
  Sender: FDA-Public Use
  Company Number: 215096

PATIENT
  Age: 68 Year
  Sex: Male
  Weight: 109 kg

DRUGS (4)
  1. MABTHERA(RITUXIMAB) CONC FOR SOLUTION FOR INFUSION [Suspect]
     Indication: CHRONIC LYMPHOCYTIC LEUKAEMIA
     Dosage: 750 MG, INTRAVENOUS
     Route: 042
     Dates: start: 20050219
  2. SOLU-MEDROL [Concomitant]
  3. PERFALGAN (ACETAMINOPHEN) [Concomitant]
  4. POLARAMINE [Concomitant]

REACTIONS (2)
  - ANAPHYLACTIC SHOCK [None]
  - SOMNOLENCE [None]
